FAERS Safety Report 9223052 (Version 1)
Quarter: 2013Q1

REPORT INFORMATION
  Report Type: Spontaneous
  Country: US (occurrence: None)
  Receive Date: 20120914
  Receipt Date: 20120914
  Transmission Date: 20140127
  Serious: Yes (Hospitalization)
  Sender: FDA-Public Use
  Company Number: JPI-P-018715

PATIENT
  Age: 70 Year
  Sex: Female
  Weight: 108.86 kg

DRUGS (2)
  1. XYREM (500 MILLIGRAM/MILLILITERS, SOLUTION) (SODIUM OXYBATE) [Suspect]
     Indication: NARCOLEPSY
     Route: 048
     Dates: start: 2003
  2. MULTIPLE UNSPECIFIED MEDICATIONS [Concomitant]

REACTIONS (5)
  - Pneumonia [None]
  - Weight increased [None]
  - Fluid retention [None]
  - Agitation [None]
  - Feeling abnormal [None]
